FAERS Safety Report 12226936 (Version 1)
Quarter: 2016Q1

REPORT INFORMATION
  Report Type: Spontaneous
  Country: FR (occurrence: FR)
  Receive Date: 20160331
  Receipt Date: 20160331
  Transmission Date: 20160526
  Serious: Yes (Disabling, Other)
  Sender: FDA-Public Use
  Company Number: FR-ASTRAZENECA-2016SE33933

PATIENT
  Age: 20863 Day
  Sex: Male

DRUGS (8)
  1. METHOTREXATE [Suspect]
     Active Substance: METHOTREXATE
     Indication: NON-HODGKIN^S LYMPHOMA
     Dosage: MYLAN, 5575 MG, ONCE/SINGLE ADMINISTRATION
     Route: 041
     Dates: start: 20151110, end: 20151110
  2. METFORMIN [Suspect]
     Active Substance: METFORMIN HYDROCHLORIDE
     Dosage: 500 MG, TWO TIMES A DAY NON-AZ PRODUCT
     Route: 048
     Dates: end: 20151117
  3. PRIMPERAN [Concomitant]
     Active Substance: METOCLOPRAMIDE HYDROCHLORIDE
     Dates: start: 20151116
  4. CALCIUM LEVOFOLINATE [Concomitant]
     Active Substance: LEVOLEUCOVORIN CALCIUM
  5. MORPHINE [Suspect]
     Active Substance: MORPHINE
     Route: 048
     Dates: end: 20151117
  6. ZOPHREN [Concomitant]
     Active Substance: ONDANSETRON
     Dates: start: 20151116
  7. ATACAND [Suspect]
     Active Substance: CANDESARTAN CILEXETIL
     Route: 048
     Dates: end: 20151117
  8. ZELITREX [Concomitant]
     Active Substance: VALACYCLOVIR HYDROCHLORIDE

REACTIONS (4)
  - Nutritional condition abnormal [Unknown]
  - Dehydration [Unknown]
  - Non-Hodgkin^s lymphoma [Unknown]
  - Acute kidney injury [Recovered/Resolved with Sequelae]

NARRATIVE: CASE EVENT DATE: 20151117
